FAERS Safety Report 11519692 (Version 2)
Quarter: 2016Q2

REPORT INFORMATION
  Report Type: Spontaneous
  Country: US (occurrence: US)
  Receive Date: 20150918
  Receipt Date: 20160608
  Transmission Date: 20160815
  Serious: Yes (Other)
  Sender: FDA-Public Use
  Company Number: US-ASTRAZENECA-2015SE89129

PATIENT
  Age: 27081 Day
  Sex: Male
  Weight: 70.3 kg

DRUGS (2)
  1. ASPIRIN. [Concomitant]
     Active Substance: ASPIRIN
     Route: 048
  2. TUDORZA PRESSAIR [Suspect]
     Active Substance: ACLIDINIUM BROMIDE
     Indication: CHRONIC OBSTRUCTIVE PULMONARY DISEASE
     Dosage: 400 UG, ONE PUFF DAILY
     Route: 055
     Dates: start: 20150822

REACTIONS (6)
  - Device malfunction [Unknown]
  - Lung neoplasm malignant [Unknown]
  - Intentional product misuse [Unknown]
  - Gait disturbance [Unknown]
  - Product packaging quantity issue [Unknown]
  - Dyspnoea [Unknown]

NARRATIVE: CASE EVENT DATE: 20150822
